FAERS Safety Report 7415968-9 (Version None)
Quarter: 2011Q2

REPORT INFORMATION
  Report Type: 
  Country: None (occurrence: None)
  Receive Date: 20110414
  Receipt Date: 20091124
  Transmission Date: 20111010
  Serious: Yes (Hospitalization, Other)
  Sender: FDA-Public Use
  Company Number: PHHY2009DE67411

PATIENT
  Sex: Female

DRUGS (2)
  1. ANTIPSYCHOTICS [Concomitant]
     Indication: SCHIZOPHRENIA
  2. EXTAVIA [Suspect]
     Dosage: UNK
     Route: 058

REACTIONS (7)
  - DEPRESSED MOOD [None]
  - MULTIPLE SCLEROSIS RELAPSE [None]
  - MENTAL DISORDER [None]
  - EYE DISORDER [None]
  - TEMPERATURE INTOLERANCE [None]
  - ALOPECIA [None]
  - BRONCHITIS [None]
